FAERS Safety Report 19457818 (Version 1)
Quarter: 2021Q2

REPORT INFORMATION
  Report Type: Spontaneous
  Country: FR (occurrence: FR)
  Receive Date: 20210624
  Receipt Date: 20210624
  Transmission Date: 20210717
  Serious: Yes (Hospitalization)
  Sender: FDA-Public Use
  Company Number: FR-ACCORD-229345

PATIENT
  Age: 70 Year
  Sex: Male

DRUGS (2)
  1. VINORELBINE [Suspect]
     Active Substance: VINORELBINE TARTRATE
     Indication: LUNG CARCINOMA CELL TYPE UNSPECIFIED STAGE 0
     Route: 042
     Dates: end: 201512
  2. CISPLATIN. [Suspect]
     Active Substance: CISPLATIN
     Indication: BRONCHIAL CARCINOMA
     Route: 042
     Dates: end: 201512

REACTIONS (1)
  - Pulmonary arterial hypertension [Not Recovered/Not Resolved]

NARRATIVE: CASE EVENT DATE: 202103
